FAERS Safety Report 4849434-1 (Version None)
Quarter: 2005Q4

REPORT INFORMATION
  Report Type: 
  Country: None (occurrence: None)
  Receive Date: 20051207
  Receipt Date: 20051124
  Transmission Date: 20060501
  Serious: Yes (Other)
  Sender: FDA-Public Use
  Company Number: 2005160268

PATIENT
  Age: 55 Year
  Sex: 0

DRUGS (1)
  1. LYRICA [Suspect]
     Indication: NEURALGIA
     Dosage: 75 MG

REACTIONS (2)
  - ANEURYSM RUPTURED [None]
  - HYPOTONIA [None]
